FAERS Safety Report 13929403 (Version 1)
Quarter: 2017Q3

REPORT INFORMATION
  Report Type: Spontaneous
  Country: US (occurrence: US)
  Receive Date: 20170901
  Receipt Date: 20170901
  Transmission Date: 20171127
  Serious: Yes (Hospitalization, Other)
  Sender: FDA-Public Use
  Company Number: None

PATIENT
  Age: 70 Year
  Sex: Female
  Weight: 67.5 kg

DRUGS (6)
  1. XIIDRA [Suspect]
     Active Substance: LIFITEGRAST
     Indication: DRY EYE
     Route: 047
  2. TIZANIDINE. [Concomitant]
     Active Substance: TIZANIDINE
  3. DICLOFENAC [Concomitant]
     Active Substance: DICLOFENAC
  4. GABAPENTIN. [Concomitant]
     Active Substance: GABAPENTIN
  5. THYROXINE [Concomitant]
     Active Substance: LEVOTHYROXINE
  6. OXYCODONE AND ACETAMINOPHEN [Concomitant]
     Active Substance: ACETAMINOPHEN\OXYCODONE HYDROCHLORIDE

REACTIONS (8)
  - Eye disorder [None]
  - Chest pain [None]
  - Visual impairment [None]
  - Dysgeusia [None]
  - Blood pressure increased [None]
  - Feeling abnormal [None]
  - Reading disorder [None]
  - Vision blurred [None]

NARRATIVE: CASE EVENT DATE: 20170816
